FAERS Safety Report 8010699-9 (Version None)
Quarter: 2011Q4

REPORT INFORMATION
  Report Type: 
  Country: None (occurrence: None)
  Receive Date: 20111228
  Receipt Date: 20111219
  Transmission Date: 20120403
  Serious: Yes (Hospitalization)
  Sender: FDA-Public Use
  Company Number: CA-JNJFOC-20111210500

PATIENT
  Sex: Male
  Weight: 100.5 kg

DRUGS (5)
  1. PROPRANOLOL [Concomitant]
  2. VITAMIN D [Concomitant]
  3. REMICADE [Suspect]
     Indication: CROHN'S DISEASE
     Dates: start: 20100101
  4. IMURAN [Concomitant]
  5. CRESTOR [Concomitant]

REACTIONS (1)
  - RETINAL DETACHMENT [None]
